FAERS Safety Report 7060002-6 (Version None)
Quarter: 2010Q4

REPORT INFORMATION
  Report Type: 
  Country: None (occurrence: None)
  Receive Date: 20101025
  Receipt Date: 20101018
  Transmission Date: 20110411
  Serious: Yes (Other)
  Sender: FDA-Public Use
  Company Number: BR-JNJFOC-20100300884

PATIENT
  Sex: Female

DRUGS (1)
  1. ULTRACET [Suspect]
     Indication: ANALGESIC THERAPY
     Dosage: EVERY 8 HOURS WHEN SHE PRESENTS PAIN
     Route: 065

REACTIONS (2)
  - GASTRITIS [None]
  - NAUSEA [None]
